FAERS Safety Report 6983473-X (Version None)
Quarter: 2010Q3

REPORT INFORMATION
  Report Type: 
  Country: None (occurrence: None)
  Receive Date: 20100914
  Receipt Date: 20080522
  Transmission Date: 20110219
  Serious: No
  Sender: FDA-Public Use
  Company Number: US-WYE-H04251408

PATIENT

DRUGS (1)
  1. ADVIL LIQUI-GELS [Suspect]
     Indication: TOOTHACHE
     Dosage: 10-12 TABLETS DAILY
     Route: 048

REACTIONS (2)
  - OVERDOSE [None]
  - RENAL PAIN [None]
